FAERS Safety Report 21836901 (Version 1)
Quarter: 2023Q1

REPORT INFORMATION
  Report Type: Spontaneous
  Country: US (occurrence: None)
  Receive Date: 20230106
  Receipt Date: 20230106
  Transmission Date: 20230417
  Serious: No
  Sender: FDA-Public Use
  Company Number: None

PATIENT
  Sex: Female

DRUGS (1)
  1. TALTZ [Suspect]
     Active Substance: IXEKIZUMAB
     Indication: Dermatitis
     Dosage: 80MG EVERY 4 WEEKS SQ
     Route: 058
     Dates: start: 20220806

REACTIONS (2)
  - Drug ineffective [None]
  - Skin discolouration [None]
